FAERS Safety Report 5489578-7 (Version None)
Quarter: 2007Q4

REPORT INFORMATION
  Report Type: 
  Country: None (occurrence: None)
  Receive Date: 20071016
  Receipt Date: 20071016
  Transmission Date: 20080405
  Serious: Yes (Other)
  Sender: FDA-Public Use
  Company Number: None

PATIENT
  Age: 53 Year
  Sex: Female
  Weight: 61.2356 kg

DRUGS (2)
  1. CYMBALTA [Suspect]
     Indication: DEPRESSION
     Dosage: 1  DAILY  PO
     Route: 048
     Dates: start: 20070801, end: 20071001
  2. CYMBALTA [Suspect]
     Indication: PAIN
     Dosage: 1  DAILY  PO
     Route: 048
     Dates: start: 20070801, end: 20071001

REACTIONS (11)
  - ABASIA [None]
  - DIZZINESS [None]
  - DRUG DEPENDENCE [None]
  - DRUG WITHDRAWAL SYNDROME [None]
  - EXTRASYSTOLES [None]
  - FATIGUE [None]
  - FEELING ABNORMAL [None]
  - MOVEMENT DISORDER [None]
  - NAUSEA [None]
  - PALPITATIONS [None]
  - VERTIGO [None]
